FAERS Safety Report 6614412-9 (Version None)
Quarter: 2010Q1

REPORT INFORMATION
  Report Type: 
  Country: None (occurrence: None)
  Receive Date: 20100303
  Receipt Date: 20100303
  Transmission Date: 20100710
  Serious: No
  Sender: FDA-Public Use
  Company Number: None

PATIENT

DRUGS (1)
  1. LACTATED RINGER'S [Suspect]
     Dates: start: 20100226, end: 20100302

REACTIONS (1)
  - DYSGEUSIA [None]
